FAERS Safety Report 9925226 (Version 1)
Quarter: 2014Q1

REPORT INFORMATION
  Report Type: Spontaneous
  Country: US (occurrence: None)
  Receive Date: 20140224
  Receipt Date: 20140224
  Transmission Date: 20141002
  Serious: Yes (Hospitalization)
  Sender: FDA-Public Use
  Company Number: 2014P1001324

PATIENT
  Age: 65 Year
  Sex: Male

DRUGS (2)
  1. AMIODARONE [Suspect]
     Indication: ATRIAL FIBRILLATION
  2. DABIGATRAN [Suspect]

REACTIONS (10)
  - Cardiac failure [None]
  - Condition aggravated [None]
  - Melaena [None]
  - Drug interaction [None]
  - Toxicity to various agents [None]
  - Gastritis erosive [None]
  - Atrial thrombosis [None]
  - Activated partial thromboplastin time prolonged [None]
  - International normalised ratio increased [None]
  - Treatment noncompliance [None]
